FAERS Safety Report 15042534 (Version 1)
Quarter: 2018Q2

REPORT INFORMATION
  Report Type: Report from Study
  Country: US (occurrence: US)
  Receive Date: 20180621
  Receipt Date: 20180621
  Transmission Date: 20180711
  Serious: Yes (Other)
  Sender: FDA-Public Use
  Company Number: US-ROCHE-2143114

PATIENT
  Sex: Male

DRUGS (4)
  1. TESTOSTERONE CYPIONATE. [Concomitant]
     Active Substance: TESTOSTERONE CYPIONATE
     Dosage: 200 MG/ML - 0.5ML IM QWEEK
     Route: 030
  2. HYDROCORTISONE. [Concomitant]
     Active Substance: HYDROCORTISONE
     Dosage: 1/2 TAB BID
     Route: 048
  3. NUTROPIN AQ [Suspect]
     Active Substance: SOMATROPIN
     Indication: POSTOPERATIVE HYPOPITUITARISM
     Dosage: NUSPIN 10, 0.1 MG DOSING INCREMENTS, 7 INJECTIONS PER WEEK, DISPENSED 3 MONTH SUPPLY AND REFILLED ON
     Route: 058
  4. VIAGRA [Concomitant]
     Active Substance: SILDENAFIL CITRATE
     Route: 048

REACTIONS (24)
  - Dry throat [Unknown]
  - Blood testosterone increased [Unknown]
  - Sleep disorder [Unknown]
  - Mean cell haemoglobin increased [Unknown]
  - Blood creatinine increased [Unknown]
  - Hypotension [Unknown]
  - Dry mouth [Unknown]
  - Throat irritation [Unknown]
  - Blood bilirubin decreased [Unknown]
  - Blood thyroid stimulating hormone decreased [Unknown]
  - Polydipsia [Unknown]
  - Stomatitis [Unknown]
  - Blood testosterone decreased [Unknown]
  - Weight decreased [Unknown]
  - Mean cell haemoglobin concentration increased [Unknown]
  - Polyuria [Unknown]
  - Blood prolactin increased [Unknown]
  - Asthenia [Unknown]
  - Protein total decreased [Unknown]
  - Diabetes insipidus [Unknown]
  - Insulin-like growth factor decreased [Unknown]
  - Cortisol decreased [Unknown]
  - Nocturia [Unknown]
  - Headache [Unknown]
